FAERS Safety Report 4687590-9 (Version None)
Quarter: 2005Q2

REPORT INFORMATION
  Report Type: 
  Country: None (occurrence: None)
  Receive Date: 20050610
  Receipt Date: 20050509
  Transmission Date: 20051028
  Serious: Yes (Life-Threatening, Hospitalization)
  Sender: FDA-Public Use
  Company Number: PT-BRISTOL-MYERS SQUIBB COMPANY-12961637

PATIENT
  Age: 41 Year
  Sex: Female
  Weight: 50 kg

DRUGS (4)
  1. REYATAZ [Suspect]
     Indication: HIV INFECTION
     Route: 048
     Dates: start: 20050413, end: 20050415
  2. EFAVIRENZ [Concomitant]
     Indication: HIV INFECTION
  3. TENOFOVIR DISOPROXIL FUMARATE [Concomitant]
     Indication: HIV INFECTION
     Route: 048
  4. ISONIAZID [Concomitant]
     Indication: TUBERCULOSIS

REACTIONS (4)
  - BLISTER [None]
  - PRURITUS [None]
  - SKIN EXFOLIATION [None]
  - SKIN LESION [None]
